APPROVED DRUG PRODUCT: OXYCODONE AND ACETAMINOPHEN
Active Ingredient: ACETAMINOPHEN; OXYCODONE HYDROCHLORIDE
Strength: 325MG/5ML;5MG/5ML
Dosage Form/Route: SOLUTION;ORAL
Application: A040680 | Product #001
Applicant: SPECGX LLC
Approved: Sep 29, 2006 | RLD: No | RS: No | Type: DISCN